FAERS Safety Report 14019851 (Version 2)
Quarter: 2018Q2

REPORT INFORMATION
  Report Type: Other
  Country: CA (occurrence: CA)
  Receive Date: 20170928
  Receipt Date: 20180517
  Transmission Date: 20180711
  Serious: Yes (Hospitalization, Other)
  Sender: FDA-Public Use
  Company Number: CA-APOTEX-2017AP018822

PATIENT
  Age: 48 Year
  Sex: Female

DRUGS (28)
  1. FRAGMIN [Suspect]
     Active Substance: DALTEPARIN SODIUM
     Indication: PHLEBITIS
     Dosage: 15000 IU, QID
     Route: 058
  2. FRAGMIN [Suspect]
     Active Substance: DALTEPARIN SODIUM
     Indication: DEEP VEIN THROMBOSIS
  3. VANCOMYCIN [Suspect]
     Active Substance: VANCOMYCIN
     Indication: ABSCESS
     Dosage: UNK
     Route: 042
  4. STEMETIL                           /00013301/ [Suspect]
     Active Substance: PROCHLORPERAZINE
     Indication: PRODUCT USED FOR UNKNOWN INDICATION
     Dosage: UNK
     Route: 065
  5. CHOLECALCIFEROL [Concomitant]
     Active Substance: CHOLECALCIFEROL
     Indication: PRODUCT USED FOR UNKNOWN INDICATION
     Dosage: UNK
     Route: 065
  6. IMOVANE [Concomitant]
     Active Substance: ZOPICLONE
     Indication: PRODUCT USED FOR UNKNOWN INDICATION
     Dosage: UNK
     Route: 065
  7. APO-CEPHALEX [Concomitant]
     Active Substance: CEPHALEXIN
     Indication: PRODUCT USED FOR UNKNOWN INDICATION
     Dosage: UNK
     Route: 065
  8. PREDNISONE. [Concomitant]
     Active Substance: PREDNISONE
     Indication: PRODUCT USED FOR UNKNOWN INDICATION
     Dosage: UNK
     Route: 065
  9. VEDOLIZUMAB [Suspect]
     Active Substance: VEDOLIZUMAB
     Indication: COLITIS ULCERATIVE
     Dosage: 300 MG, UNK ONE EVERY FOUR WEEKS
     Route: 042
  10. KETOROLAC [Suspect]
     Active Substance: KETOROLAC\KETOROLAC TROMETHAMINE
     Indication: ABSCESS
     Dosage: 500 MG, QID
     Route: 048
  11. HYDROMORPHONE [Concomitant]
     Active Substance: HYDROMORPHONE
     Indication: PRODUCT USED FOR UNKNOWN INDICATION
     Dosage: UNK
     Route: 065
  12. PLAQUENIL                          /00072602/ [Concomitant]
     Active Substance: HYDROXYCHLOROQUINE DIPHOSPHATE
     Indication: PRODUCT USED FOR UNKNOWN INDICATION
     Dosage: UNK
     Route: 065
  13. CEFAZOLIN [Suspect]
     Active Substance: CEFAZOLIN
     Indication: ABSCESS
     Dosage: 2 G, QD
     Route: 042
  14. VENOFER [Suspect]
     Active Substance: IRON SUCROSE
     Dosage: 1 EVERY 2 WEEKS
     Route: 065
  15. CARDIZEM CD [Concomitant]
     Active Substance: DILTIAZEM HYDROCHLORIDE
     Indication: PRODUCT USED FOR UNKNOWN INDICATION
     Dosage: UNK
     Route: 065
  16. RISEDRONIC ACID [Concomitant]
     Active Substance: RISEDRONIC ACID
     Indication: PRODUCT USED FOR UNKNOWN INDICATION
     Dosage: UNK
     Route: 065
  17. VEDOLIZUMAB [Suspect]
     Active Substance: VEDOLIZUMAB
     Dosage: 300 UNK, UNK CYCLICAL
     Route: 042
  18. PARA-AMINOSALICYLIC ACID [Concomitant]
     Active Substance: AMINOSALICYLIC ACID
     Indication: PRODUCT USED FOR UNKNOWN INDICATION
     Dosage: UNK
     Route: 065
  19. ANCEF [Suspect]
     Active Substance: CEFAZOLIN SODIUM
     Indication: ABSCESS
     Dosage: 2 G, QD
     Route: 042
  20. ENTYVIO [Suspect]
     Active Substance: VEDOLIZUMAB
     Indication: COLITIS ULCERATIVE
     Dosage: 300 MG, UNK
     Route: 042
  21. PANTOLOC                           /01263201/ [Suspect]
     Active Substance: PANTOPRAZOLE SODIUM
     Indication: PRODUCT USED FOR UNKNOWN INDICATION
     Dosage: 40 MG, QD
     Route: 065
  22. IRON SUCROSE [Suspect]
     Active Substance: IRON SUCROSE
     Indication: ABSCESS
     Dosage: UNK, ONE EVERY TWO WEEKS
     Route: 042
  23. ENTYVIO [Suspect]
     Active Substance: VEDOLIZUMAB
     Dosage: 300 MG, 1 EVERY 4 WEEK
     Route: 042
  24. CEFTRIAXONE. [Suspect]
     Active Substance: CEFTRIAXONE
     Indication: ABSCESS
     Dosage: 2 G, QD
     Route: 042
  25. VENOFER [Suspect]
     Active Substance: IRON SUCROSE
     Indication: ABSCESS
     Dosage: UNK
     Route: 042
  26. ACTONEL [Concomitant]
     Active Substance: RISEDRONATE SODIUM
     Indication: PRODUCT USED FOR UNKNOWN INDICATION
     Dosage: UNK
     Route: 065
  27. SALOFALK                           /00000301/ [Concomitant]
     Active Substance: MESALAMINE
     Indication: PRODUCT USED FOR UNKNOWN INDICATION
     Dosage: UNK
     Route: 065
  28. IRON SUCROSE [Suspect]
     Active Substance: IRON SUCROSE
     Dosage: UNK CYCLICAL
     Route: 042

REACTIONS (3)
  - Abscess [Unknown]
  - Off label use [Unknown]
  - Haematoma [Unknown]
